FAERS Safety Report 23328122 (Version 1)
Quarter: 2023Q4

REPORT INFORMATION
  Report Type: Spontaneous
  Country: PT (occurrence: PT)
  Receive Date: 20231221
  Receipt Date: 20231221
  Transmission Date: 20240110
  Serious: Yes (Other)
  Sender: FDA-Public Use
  Company Number: PT-AKCEA THERAPEUTICS, INC.-2023IS002836

PATIENT

DRUGS (1)
  1. TEGSEDI [Suspect]
     Active Substance: INOTERSEN SODIUM
     Indication: Hereditary neuropathic amyloidosis
     Dosage: UNK
     Route: 065
     Dates: start: 202103

REACTIONS (8)
  - Glomerulonephritis [Recovering/Resolving]
  - Renal amyloidosis [Unknown]
  - C1q nephropathy [Unknown]
  - C3 glomerulopathy [Unknown]
  - Albuminuria [Unknown]
  - Urinary sediment present [Unknown]
  - Hypoalbuminaemia [Unknown]
  - C-reactive protein abnormal [Unknown]

NARRATIVE: CASE EVENT DATE: 20210901
